FAERS Safety Report 14392993 (Version 1)
Quarter: 2018Q1

REPORT INFORMATION
  Report Type: Spontaneous
  Country: US (occurrence: US)
  Receive Date: 20180116
  Receipt Date: 20180116
  Transmission Date: 20180509
  Serious: No
  Sender: FDA-Public Use
  Company Number: US-NOVOPROD-572582

PATIENT
  Sex: Male

DRUGS (2)
  1. TRESIBA [Suspect]
     Active Substance: INSULIN DEGLUDEC
     Indication: PRODUCT USED FOR UNKNOWN INDICATION
     Route: 058
  2. TRESIBA [Suspect]
     Active Substance: INSULIN DEGLUDEC
     Dosage: UNK
     Route: 058

REACTIONS (1)
  - Rash [Unknown]
